FAERS Safety Report 7075164-4 (Version None)
Quarter: 2010Q4

REPORT INFORMATION
  Report Type: 
  Country: None (occurrence: None)
  Receive Date: 20101029
  Receipt Date: 20100602
  Transmission Date: 20110411
  Serious: No
  Sender: FDA-Public Use
  Company Number: US-WYE-H15642810

PATIENT
  Age: 68 Year
  Sex: Female
  Weight: 74.91 kg

DRUGS (3)
  1. ADVIL PM [Suspect]
     Indication: INSOMNIA
     Dosage: 2 CAPLETS DAILY
     Route: 048
     Dates: start: 20100528, end: 20100601
  2. ADVIL PM [Suspect]
     Indication: PAIN
  3. DIOVAN [Concomitant]

REACTIONS (1)
  - DRUG EFFECT DECREASED [None]
